FAERS Safety Report 6724041-4 (Version None)
Quarter: 2010Q2

REPORT INFORMATION
  Report Type: 
  Country: None (occurrence: None)
  Receive Date: 20100513
  Receipt Date: 20100505
  Transmission Date: 20101027
  Serious: Yes (Hospitalization)
  Sender: FDA-Public Use
  Company Number: B0629337A

PATIENT
  Sex: Female

DRUGS (12)
  1. DEROXAT [Suspect]
     Indication: DEPRESSION
     Dosage: 20MG PER DAY
     Route: 048
     Dates: start: 20100113, end: 20100116
  2. IKOREL [Concomitant]
     Dosage: 5MG TWICE PER DAY
     Route: 065
  3. CARDENSIEL [Concomitant]
     Dosage: 1.25MG PER DAY
     Route: 065
     Dates: end: 20100117
  4. TAHOR [Concomitant]
     Dosage: 10MG PER DAY
     Route: 065
  5. LEVOTHYROXINE SODIUM [Concomitant]
     Indication: HYPOTHYROIDISM
     Dosage: 50MCG PER DAY
     Route: 065
  6. NEXIUM [Concomitant]
     Dosage: 40MG PER DAY
     Route: 065
  7. ALDACTONE [Concomitant]
     Dosage: 25MG PER DAY
     Route: 065
     Dates: end: 20100117
  8. SYMBICORT [Concomitant]
     Dosage: 2PUFF TWICE PER DAY
     Route: 065
  9. LEXOMIL [Concomitant]
     Dosage: .75UNIT THREE TIMES PER DAY
     Route: 065
  10. ZOLPIDEM [Concomitant]
     Dosage: 1UNIT PER DAY
     Route: 065
  11. NITRODERM [Concomitant]
     Dosage: 5MG PER DAY
     Route: 023
  12. LAMALINE [Concomitant]
     Dosage: 6UNIT PER DAY
     Route: 065

REACTIONS (7)
  - CONFUSIONAL STATE [None]
  - DIZZINESS [None]
  - GAIT DISTURBANCE [None]
  - HYPONATRAEMIA [None]
  - INAPPROPRIATE ANTIDIURETIC HORMONE SECRETION [None]
  - URINE SODIUM DECREASED [None]
  - VOMITING [None]
